FAERS Safety Report 4429905-2 (Version None)
Quarter: 2004Q3

REPORT INFORMATION
  Report Type: 
  Country: None (occurrence: None)
  Receive Date: 20040817
  Receipt Date: 20040804
  Transmission Date: 20050211
  Serious: Yes (Other)
  Sender: FDA-Public Use
  Company Number: A036632

PATIENT
  Age: 54 Year
  Sex: Female
  Weight: 104.3273 kg

DRUGS (9)
  1. ZOLOFT [Suspect]
     Indication: DEPRESSION
     Dosage: 100 MG (1 IN 1 D), ORAL
     Route: 048
     Dates: start: 19980101
  2. REZULIN [Suspect]
     Indication: DIABETES MELLITUS
     Dosage: 400 MG (1 IN 1 D), ORAL
     Route: 048
     Dates: start: 19990430, end: 19990713
  3. ACARBOSE (ACARBOSE) [Concomitant]
  4. DIGOXIN [Concomitant]
  5. LORAZEPAM [Concomitant]
  6. LISINOPRIL [Concomitant]
  7. LEVOTHYROXINE SODIUM [Concomitant]
  8. GLYBURIDE [Concomitant]
  9. ALPRAZOLAM [Concomitant]

REACTIONS (15)
  - CARDIAC FAILURE [None]
  - CYST [None]
  - DILATATION ATRIAL [None]
  - ELECTROCARDIOGRAM ABNORMAL [None]
  - ELECTROCARDIOGRAM ST SEGMENT ABNORMAL [None]
  - ELECTROCARDIOGRAM T WAVE ABNORMAL [None]
  - HEADACHE [None]
  - HEPATITIS [None]
  - HYPERTENSION [None]
  - INSOMNIA [None]
  - OESOPHAGEAL DISORDER [None]
  - PEDAL PULSE ABNORMAL [None]
  - RESPIRATORY DISORDER [None]
  - RESPIRATORY TRACT INFECTION [None]
  - SKIN DISCOLOURATION [None]
